FAERS Safety Report 8158800-0 (Version None)
Quarter: 2012Q1

REPORT INFORMATION
  Report Type: 
  Country: None (occurrence: None)
  Receive Date: 20120223
  Receipt Date: 20120208
  Transmission Date: 20120608
  Serious: Yes (Other)
  Sender: FDA-Public Use
  Company Number: PHHY2012AU013053

PATIENT
  Sex: Female

DRUGS (11)
  1. CLONAZEPAM [Concomitant]
     Dosage: 2 MG, QD
  2. EFFEXOR [Concomitant]
     Dosage: 150 MG, QD
  3. PREDNISOLONE [Suspect]
     Indication: ARTHRITIS
     Dosage: 20 MG, QD
     Dates: start: 20111028
  4. STELAZINE [Concomitant]
     Dosage: 2 MG, QD
     Dates: start: 19840101
  5. VITAMIN D [Concomitant]
  6. ACETAMINOPHEN [Concomitant]
     Dosage: 3 G, QD
  7. VALDOXAN [Suspect]
     Indication: DEPRESSION
     Dosage: 25 MG, QD
     Route: 048
     Dates: start: 20111026, end: 20120123
  8. LEFLUNOMIDE [Suspect]
     Indication: ARTHRITIS
     Dosage: 20 MG, QD
     Dates: start: 20111127
  9. SPIRONOLACTONE [Suspect]
     Dosage: 25 MG, QD
     Dates: start: 20120101
  10. CARTIA XT [Concomitant]
     Dosage: 100 MG, QD
  11. ISOPTIN [Concomitant]
     Dosage: 360 MG, QD

REACTIONS (20)
  - FLUSHING [None]
  - DECREASED APPETITE [None]
  - MALAISE [None]
  - HYPERHIDROSIS [None]
  - STRESS [None]
  - MUSCLE TIGHTNESS [None]
  - DYSGEUSIA [None]
  - PALPITATIONS [None]
  - PAIN [None]
  - ANXIETY [None]
  - DIARRHOEA [None]
  - NAUSEA [None]
  - TENDERNESS [None]
  - ARTHRITIS [None]
  - PURPURA [None]
  - RASH [None]
  - HALLUCINATION, VISUAL [None]
  - VISION BLURRED [None]
  - VOMITING [None]
  - DIZZINESS [None]
